FAERS Safety Report 8902375 (Version 1)
Quarter: 2012Q4

REPORT INFORMATION
  Report Type: Report from Study
  Country: CA (occurrence: CA)
  Receive Date: 20121112
  Receipt Date: 20121112
  Transmission Date: 20130627
  Serious: Yes (Other)
  Sender: FDA-Public Use
  Company Number: CA-JNJFOC-20121101127

PATIENT
  Sex: Male
  Weight: 104.5 kg

DRUGS (1)
  1. REMICADE [Suspect]
     Indication: RHEUMATOID ARTHRITIS
     Dosage: received total of 69 infusions
     Route: 042
     Dates: end: 20121101

REACTIONS (1)
  - Malignant melanoma [Unknown]
